FAERS Safety Report 5093746-6 (Version None)
Quarter: 2006Q3

REPORT INFORMATION
  Report Type: 
  Country: None (occurrence: None)
  Receive Date: 20060831
  Receipt Date: 20060823
  Transmission Date: 20061208
  Serious: Yes (Death)
  Sender: FDA-Public Use
  Company Number: US-AVENTIS-200614494EU

PATIENT
  Age: 73 Year
  Sex: Female
  Weight: 47.5 kg

DRUGS (13)
  1. LASIX [Suspect]
     Indication: PLEURAL EFFUSION
     Route: 048
     Dates: start: 20060724
  2. CLARITHROMYCIN [Suspect]
     Indication: PLEURAL EFFUSION
     Route: 048
     Dates: start: 20060724
  3. CODE UNBROKEN [Suspect]
     Indication: BREAST CANCER
     Route: 048
     Dates: start: 20060501
  4. CARBOCAIN [Concomitant]
     Route: 042
  5. MECOBALAMIN [Concomitant]
     Route: 048
  6. NEUROTROPIN [Concomitant]
     Route: 048
  7. HYPEN [Concomitant]
     Route: 048
  8. TOFRANIL [Concomitant]
     Route: 048
  9. DEZOLAM [Concomitant]
     Route: 048
  10. VOLTAREN [Concomitant]
  11. GEBEN [Concomitant]
     Indication: SKIN ULCER
     Route: 061
  12. SAIREI-TO [Concomitant]
     Route: 048
  13. ATARAX [Concomitant]
     Route: 048

REACTIONS (7)
  - ACUTE MYOCARDIAL INFARCTION [None]
  - ARRHYTHMIA [None]
  - ASPARTATE AMINOTRANSFERASE INCREASED [None]
  - BLOOD CREATINE PHOSPHOKINASE INCREASED [None]
  - BLOOD LACTATE DEHYDROGENASE INCREASED [None]
  - CARDIAC DEATH [None]
  - JUGULAR VEIN DISTENSION [None]
